FAERS Safety Report 19211486 (Version 2)
Quarter: 2021Q2

REPORT INFORMATION
  Report Type: Report from Study
  Country: US (occurrence: US)
  Receive Date: 20210504
  Receipt Date: 20210602
  Transmission Date: 20210717
  Serious: Yes (Hospitalization)
  Sender: FDA-Public Use
  Company Number: US-CELGENEUS-USA-20210406849

PATIENT
  Age: 70 Year
  Sex: Female

DRUGS (6)
  1. REVLIMID [Suspect]
     Active Substance: LENALIDOMIDE
     Indication: T-CELL LYMPHOMA REFRACTORY
     Dosage: 5 MILLIGRAM
     Route: 048
     Dates: start: 20201218, end: 20210422
  2. XARELTO [Concomitant]
     Active Substance: RIVAROXABAN
     Indication: PRODUCT USED FOR UNKNOWN INDICATION
     Dosage: 20 MILLIGRAM
     Route: 048
  3. DEXAMETHASONE. [Suspect]
     Active Substance: DEXAMETHASONE
     Indication: T-CELL LYMPHOMA REFRACTORY
     Dosage: 40 MILLIGRAM
     Route: 048
     Dates: start: 20201218, end: 20210422
  4. AZACITIDINE ORAL (CC?486) [Suspect]
     Active Substance: AZACITIDINE
     Indication: T-CELL LYMPHOMA REFRACTORY
     Dosage: 300 MILLIGRAM
     Route: 048
     Dates: start: 20201225, end: 20210422
  5. ROMIDEPSIN. [Suspect]
     Active Substance: ROMIDEPSIN
     Indication: T-CELL LYMPHOMA REFRACTORY
     Dosage: 18 MG IN 500 ML 0.9% NACL INJ
     Route: 041
     Dates: start: 20201218, end: 20210422
  6. OMEPRAZOLE. [Concomitant]
     Active Substance: OMEPRAZOLE
     Indication: PRODUCT USED FOR UNKNOWN INDICATION
     Dosage: 20 MILLIGRAM
     Route: 048

REACTIONS (6)
  - Atrial fibrillation [Unknown]
  - Decreased appetite [Unknown]
  - Cardiac failure [Unknown]
  - Hypotension [Unknown]
  - Anaemia [Unknown]
  - Fatigue [Unknown]

NARRATIVE: CASE EVENT DATE: 20210423
